FAERS Safety Report 4340402-5 (Version None)
Quarter: 2004Q2

REPORT INFORMATION
  Report Type: 
  Country: None (occurrence: None)
  Receive Date: 20040414
  Receipt Date: 20040330
  Transmission Date: 20050107
  Serious: Yes (Disabling)
  Sender: FDA-Public Use
  Company Number: 200312396

PATIENT
  Age: 48 Year
  Sex: Female
  Weight: 58.9676 kg

DRUGS (9)
  1. BOTOX [Suspect]
     Indication: SKIN WRINKLING
     Dosage: 9.62 UNITS PRN IM
     Route: 030
     Dates: start: 20030828
  2. AMBIEN [Concomitant]
  3. XANAX [Concomitant]
  4. TYLENOL PM [Concomitant]
  5. BLACK COHOSH [Concomitant]
  6. MULTI-VITAMINS [Concomitant]
  7. LOESTRIN 1.5/30 [Concomitant]
  8. TOPAMAX [Concomitant]
  9. EMETROL [Concomitant]

REACTIONS (19)
  - BLOOD CREATINE INCREASED [None]
  - CHEST PAIN [None]
  - COLLAGEN DISORDER [None]
  - COUGH [None]
  - DRUG INEFFECTIVE [None]
  - FATIGUE [None]
  - FLUID INTAKE REDUCED [None]
  - GASTROOESOPHAGEAL REFLUX DISEASE [None]
  - INFLUENZA LIKE ILLNESS [None]
  - INJECTION SITE HAEMORRHAGE [None]
  - MENOPAUSAL SYMPTOMS [None]
  - NAUSEA [None]
  - PHARYNGITIS [None]
  - PHARYNGOLARYNGEAL PAIN [None]
  - PNEUMONIA PRIMARY ATYPICAL [None]
  - SKIN ATROPHY [None]
  - SKIN WRINKLING [None]
  - UPPER RESPIRATORY TRACT INFECTION [None]
  - VIRAL INFECTION [None]
